FAERS Safety Report 21764101 (Version 1)
Quarter: 2022Q4

REPORT INFORMATION
  Report Type: Spontaneous
  Country: JP (occurrence: JP)
  Receive Date: 20221222
  Receipt Date: 20221222
  Transmission Date: 20230113
  Serious: Yes (Other)
  Sender: FDA-Public Use
  Company Number: JP-DSJP-DSJ-2022-107503

PATIENT
  Age: 57 Year
  Sex: Female

DRUGS (1)
  1. DENOSUMAB [Suspect]
     Active Substance: DENOSUMAB
     Indication: Osteoporosis
     Dosage: 60 MILLIGRAM, Q6MO
     Route: 065

REACTIONS (3)
  - Bone sequestrum [Recovered/Resolved]
  - Osteonecrosis of jaw [Recovering/Resolving]
  - Gingival swelling [Recovered/Resolved]

NARRATIVE: CASE EVENT DATE: 20200501
